FAERS Safety Report 21922318 (Version 2)
Quarter: 2023Q1

REPORT INFORMATION
  Report Type: Spontaneous
  Country: US (occurrence: US)
  Receive Date: 20230128
  Receipt Date: 20230206
  Transmission Date: 20230418
  Serious: No
  Sender: FDA-Public Use
  Company Number: US-ABBVIE-4285908

PATIENT
  Sex: Male
  Weight: 72 kg

DRUGS (1)
  1. CREON [Suspect]
     Active Substance: PANCRELIPASE AMYLASE\PANCRELIPASE LIPASE\PANCRELIPASE PROTEASE
     Indication: Pancreatitis chronic
     Dosage: THE DRUG START DATE WAS 2019.?360000 UNIT?TWO WITH MEALS, ONE WITH SNACK
     Route: 048

REACTIONS (11)
  - Diabetes mellitus [Not Recovered/Not Resolved]
  - Hyperglycaemia [Not Recovered/Not Resolved]
  - Abdominal discomfort [Recovered/Resolved]
  - Diabetes mellitus [Recovered/Resolved]
  - Bronchitis [Recovering/Resolving]
  - Frequent bowel movements [Unknown]
  - Headache [Not Recovered/Not Resolved]
  - Abnormal faeces [Unknown]
  - Excessive cerumen production [Not Recovered/Not Resolved]
  - Flatulence [Unknown]
  - Rash [Recovering/Resolving]

NARRATIVE: CASE EVENT DATE: 20190101
